FAERS Safety Report 6663099-8 (Version None)
Quarter: 2010Q1

REPORT INFORMATION
  Report Type: 
  Country: None (occurrence: None)
  Receive Date: 20100323
  Receipt Date: 20100105
  Transmission Date: 20100710
  Serious: No
  Sender: FDA-Public Use
  Company Number: 100105-0000002

PATIENT
  Age: 39 Year
  Sex: Female

DRUGS (5)
  1. SABRIL [Suspect]
     Indication: EPILEPSY
     Dosage: 2500 MG;QD; PO, 2000 MG;QD; PO
     Route: 048
     Dates: start: 20091214, end: 20091215
  2. SABRIL [Suspect]
     Indication: EPILEPSY
     Dosage: 2500 MG;QD; PO, 2000 MG;QD; PO
     Route: 048
     Dates: start: 20091215
  3. KEPPRA [Concomitant]
  4. TRILEPTAL [Concomitant]
  5. LEXAPRO [Concomitant]

REACTIONS (2)
  - ENERGY INCREASED [None]
  - PARAESTHESIA [None]
